FAERS Safety Report 9700877 (Version 1)
Quarter: 2013Q4

REPORT INFORMATION
  Report Type: Spontaneous
  Country: US (occurrence: US)
  Receive Date: 20131121
  Receipt Date: 20131121
  Transmission Date: 20140711
  Serious: No
  Sender: FDA-Public Use
  Company Number: US-PFIZER INC-2013331398

PATIENT
  Age: 21 Year
  Sex: Female
  Weight: 72.56 kg

DRUGS (1)
  1. CELEBREX [Suspect]
     Indication: SPONDYLITIS
     Dosage: UNK
     Dates: start: 20131101

REACTIONS (2)
  - Dysuria [Unknown]
  - Pollakiuria [Unknown]
